FAERS Safety Report 4875060-4 (Version None)
Quarter: 2006Q1

REPORT INFORMATION
  Report Type: 
  Country: None (occurrence: None)
  Receive Date: 20060104
  Receipt Date: 20051220
  Transmission Date: 20060701
  Serious: Yes (Hospitalization, Other)
  Sender: FDA-Public Use
  Company Number: 2005172944

PATIENT
  Age: 62 Year
  Sex: Male
  Weight: 73 kg

DRUGS (6)
  1. MEDROL [Suspect]
     Indication: ILL-DEFINED DISORDER
  2. CISPLATIN [Suspect]
     Indication: METASTASIS
     Dates: start: 20050712, end: 20050913
  3. TEMODAL [Suspect]
     Indication: METASTASIS
     Dosage: 75 MG/M*2 (75 MG/M*2 1 IN 1 D) ORAL
     Route: 048
     Dates: start: 20050701, end: 20050716
  4. GEMZAR [Suspect]
     Indication: LUNG NEOPLASM MALIGNANT
     Dates: start: 20050801, end: 20050913
  5. ASPIRIN [Concomitant]
  6. TAXOL [Concomitant]

REACTIONS (14)
  - ABDOMINAL PAIN UPPER [None]
  - AMYOTROPHY [None]
  - BODY TEMPERATURE DECREASED [None]
  - DEEP VEIN THROMBOSIS [None]
  - DUODENAL ULCER [None]
  - HIATUS HERNIA [None]
  - INTERNATIONAL NORMALISED RATIO INCREASED [None]
  - MUSCULOSKELETAL CHEST PAIN [None]
  - NEUTROPENIA [None]
  - OEDEMA PERIPHERAL [None]
  - OESOPHAGEAL CANDIDIASIS [None]
  - OESOPHAGITIS [None]
  - PANCYTOPENIA [None]
  - THROMBOCYTOPENIA [None]
